FAERS Safety Report 5607714-6 (Version None)
Quarter: 2008Q1

REPORT INFORMATION
  Report Type: 
  Country: None (occurrence: None)
  Receive Date: 20080130
  Receipt Date: 20080116
  Transmission Date: 20080703
  Serious: Yes (Other)
  Sender: FDA-Public Use
  Company Number: GB-AMGEN-US259183

PATIENT
  Sex: Male
  Weight: 108.1 kg

DRUGS (10)
  1. ENBREL [Suspect]
     Indication: PSORIASIS
     Route: 065
     Dates: start: 20060420, end: 20071114
  2. DICLOFENAC [Concomitant]
     Route: 048
  3. ASPIRIN [Concomitant]
     Dosage: 75MG ONCE A NIGHT
     Route: 048
  4. MORPHINE SULFATE [Concomitant]
     Dosage: 10 MG EVERY 1 PRN
  5. RABEPRAZOLE SODIUM [Concomitant]
     Dosage: 10MG ONCE A NIGHT
     Route: 048
  6. METFORMIN HCL [Concomitant]
     Route: 048
  7. TRAMADOL HCL [Concomitant]
     Route: 048
  8. ACETAMINOPHEN [Concomitant]
     Route: 048
  9. VALSARTAN [Concomitant]
     Dosage: 80MG ONCE A NIGHT
     Route: 048
  10. PAROXETINE [Concomitant]
     Dosage: 20 MG ONCE A NIGHT
     Route: 048

REACTIONS (2)
  - DRUG INEFFECTIVE [None]
  - POST PROCEDURAL INFECTION [None]
